FAERS Safety Report 9339605 (Version 3)
Quarter: 2013Q4

REPORT INFORMATION
  Report Type: Spontaneous
  Country: JP (occurrence: JP)
  Receive Date: 20130610
  Receipt Date: 20131219
  Transmission Date: 20140711
  Serious: Yes (Other)
  Sender: FDA-Public Use
  Company Number: PHHY2013JP058000

PATIENT
  Age: 31 Year
  Sex: Male

DRUGS (3)
  1. NEORAL [Suspect]
     Indication: STEM CELL TRANSPLANT
     Dosage: 150 MG, UNK
     Route: 048
     Dates: start: 2001, end: 201212
  2. NEORAL [Suspect]
     Indication: GRAFT VERSUS HOST DISEASE
     Dosage: 150 MG, UNK
     Dates: start: 201007
  3. PREDNISOLONE [Suspect]
     Indication: GRAFT VERSUS HOST DISEASE
     Dosage: 10 MG EVERY OTHER DAY
     Route: 048
     Dates: start: 201007

REACTIONS (6)
  - Hypertension [Recovering/Resolving]
  - Focal segmental glomerulosclerosis [Recovering/Resolving]
  - Nephrotic syndrome [Not Recovered/Not Resolved]
  - Nephropathy [Not Recovered/Not Resolved]
  - Renal impairment [Recovering/Resolving]
  - Proteinuria [Recovering/Resolving]
